FAERS Safety Report 6556515-3 (Version None)
Quarter: 2010Q1

REPORT INFORMATION
  Report Type: 
  Country: None (occurrence: None)
  Receive Date: 20100128
  Receipt Date: 20090317
  Transmission Date: 20100710
  Serious: Yes (Other)
  Sender: FDA-Public Use
  Company Number: AU-MERCK-0903AUS00069

PATIENT
  Age: 54 Year
  Sex: Female

DRUGS (10)
  1. VYTORIN [Suspect]
     Route: 065
  2. VYTORIN [Suspect]
     Route: 065
     Dates: start: 20090101
  3. ATORVASTATIN [Concomitant]
     Route: 065
  4. ROSUVASTATIN CALCIUM [Concomitant]
     Route: 065
     Dates: end: 20090101
  5. AMLODIPINE [Concomitant]
     Route: 065
  6. MONOPLUS [Concomitant]
     Route: 065
  7. METOPROLOL [Concomitant]
     Route: 065
  8. PRAZOSIN [Concomitant]
     Route: 065
  9. NEXIUM [Concomitant]
     Route: 065
  10. NITROGLYCERIN [Concomitant]
     Route: 065

REACTIONS (2)
  - MYALGIA [None]
  - SMALL CELL LUNG CANCER STAGE UNSPECIFIED [None]
